FAERS Safety Report 6162025-8 (Version None)
Quarter: 2009Q2

REPORT INFORMATION
  Report Type: 
  Country: None (occurrence: None)
  Receive Date: 20090417
  Receipt Date: 20090306
  Transmission Date: 20091009
  Serious: Yes (Hospitalization)
  Sender: FDA-Public Use
  Company Number: AMAN20090004

PATIENT
  Age: 87 Year
  Sex: Female

DRUGS (9)
  1. AMANTADINE HCL [Suspect]
     Indication: PARKINSON'S DISEASE
     Dosage: 100 MG, BID, PER ORAL
     Route: 048
     Dates: start: 20080401, end: 20090209
  2. CARBIDOPA AND LEVODOPA [Suspect]
     Indication: PARKINSON'S DISEASE
     Dosage: 100 MG, BID, PER ORAL
     Route: 048
     Dates: start: 20080401, end: 20090209
  3. PERGOLIDE MESYLATE [Suspect]
     Indication: PARKINSON'S DISEASE
     Dosage: 50 MCG, DAILY, PER ORAL
     Route: 048
     Dates: start: 20080401, end: 20090209
  4. NIFEDIPINE [Suspect]
     Indication: HYPERTENSION
     Dosage: 10 MG, DAILY, PER ORAL
     Route: 048
     Dates: start: 20080401, end: 20090208
  5. TALTIRELIN HYDRATE [Suspect]
     Indication: SPINOCEREBELLAR DISORDER
     Dosage: 5 MG, BID, PER ORAL
     Route: 048
     Dates: start: 20080401
  6. PRAVASTATIN SODIUM [Suspect]
     Indication: HYPERLIPIDAEMIA
     Dosage: 10 MG, DAILY, PER ORAL
     Route: 048
     Dates: start: 20080506
  7. AROTINOLOL HYDROCHLORIDE [Suspect]
     Indication: HYPERTENSION
     Dosage: 10 MG, DAILY, PER ORAL
     Route: 048
     Dates: start: 20080401
  8. RANITIDINE HYDROCHLORIDE [Suspect]
     Indication: GASTRIC ULCER
     Dosage: 150 MG, BID, PER ORAL
     Route: 048
     Dates: start: 20090106
  9. NITROGLYCERIN [Suspect]
     Indication: ANGINA PECTORIS
     Dosage: 25 MG, DAILY, UNKNOWN
     Dates: start: 20081125

REACTIONS (11)
  - ABNORMAL BEHAVIOUR [None]
  - ALANINE AMINOTRANSFERASE INCREASED [None]
  - ANGINA PECTORIS [None]
  - ASPARTATE AMINOTRANSFERASE INCREASED [None]
  - BLOOD ALKALINE PHOSPHATASE INCREASED [None]
  - BLOOD UREA INCREASED [None]
  - DELIRIUM [None]
  - DRY MOUTH [None]
  - GASTRIC ULCER [None]
  - HYPERLIPIDAEMIA [None]
  - RHABDOMYOLYSIS [None]
